FAERS Safety Report 5273863-8 (Version None)
Quarter: 2007Q1

REPORT INFORMATION
  Report Type: 
  Country: None (occurrence: None)
  Receive Date: 20070323
  Receipt Date: 20070320
  Transmission Date: 20070707
  Serious: Yes (Death, Hospitalization)
  Sender: FDA-Public Use
  Company Number: FR-ROCHE-487007

PATIENT
  Age: 32 Year
  Sex: Female

DRUGS (5)
  1. RIVOTRIL [Suspect]
     Indication: DRUG USE FOR UNKNOWN INDICATION
     Route: 048
  2. SUBUTEX [Suspect]
     Indication: DRUG USE FOR UNKNOWN INDICATION
     Route: 042
  3. PROZAC [Suspect]
     Indication: DRUG USE FOR UNKNOWN INDICATION
     Route: 048
  4. SKENAN [Suspect]
     Indication: DRUG USE FOR UNKNOWN INDICATION
     Route: 048
  5. METHADONE HCL [Concomitant]

REACTIONS (4)
  - ABORTION INDUCED [None]
  - DYSMORPHISM [None]
  - LIMB MALFORMATION [None]
  - SYNDACTYLY [None]
